FAERS Safety Report 18717323 (Version 1)
Quarter: 2021Q1

REPORT INFORMATION
  Report Type: Spontaneous
  Country: US (occurrence: US)
  Receive Date: 20210108
  Receipt Date: 20210108
  Transmission Date: 20210419
  Serious: Yes (Other)
  Sender: FDA-Public Use
  Company Number: US-AMNEAL PHARMACEUTICALS-2020-AMRX-03343

PATIENT
  Age: 2 Year
  Sex: Female

DRUGS (1)
  1. VIGABATRIN. [Suspect]
     Active Substance: VIGABATRIN
     Indication: INFANTILE SPASMS
     Dosage: 1000 MILLIGRAM, 2 /DAY
     Route: 048
     Dates: start: 20200621, end: 20201104

REACTIONS (1)
  - Retinal toxicity [Not Recovered/Not Resolved]

NARRATIVE: CASE EVENT DATE: 20201005
